FAERS Safety Report 8880271 (Version 1)
Quarter: 2012Q4

REPORT INFORMATION
  Report Type: 
  Country: US (occurrence: US)
  Receive Date: 20121031
  Receipt Date: 20121031
  Transmission Date: 20130627
  Serious: No
  Sender: FDA-Public Use
  Company Number: US-009507513-1210USA011352

PATIENT
  Age: 64 Year
  Sex: Female

DRUGS (3)
  1. TEMODAR [Suspect]
     Indication: GLIOBLASTOMA MULTIFORME
     Dosage: 75 mg/m2, UNK
     Dates: start: 2007
  2. TEMODAR [Suspect]
     Dosage: 200 mg/m2; 3 cycles
  3. TEMODAR [Suspect]
     Dosage: 100 mg/m2; 1 cycle

REACTIONS (1)
  - Fatigue [Unknown]
